FAERS Safety Report 5675625-6 (Version None)
Quarter: 2008Q1

REPORT INFORMATION
  Report Type: 
  Country: None (occurrence: None)
  Receive Date: 20080321
  Receipt Date: 20080310
  Transmission Date: 20080703
  Serious: Yes (Hospitalization, Disabling)
  Sender: FDA-Public Use
  Company Number: DE-WYE-H03012208

PATIENT
  Sex: Male

DRUGS (5)
  1. CORDAREX [Suspect]
     Indication: ATRIAL FIBRILLATION
     Route: 048
     Dates: start: 20031101, end: 20080201
  2. EUTHROID-1 [Concomitant]
     Dosage: UNSPECIFIED
     Route: 048
  3. SPIRO COMP. [Concomitant]
     Dosage: UNSPECIFIED
     Route: 048
  4. UNAT [Concomitant]
     Route: 048
  5. DILATREND [Concomitant]
     Dosage: UNSPECIFIED
     Route: 048

REACTIONS (3)
  - HEPATOCELLULAR INJURY [None]
  - HYPOALBUMINAEMIA [None]
  - OEDEMA DUE TO HEPATIC DISEASE [None]
